FAERS Safety Report 6748773-7 (Version None)
Quarter: 2010Q2

REPORT INFORMATION
  Report Type: 
  Country: None (occurrence: None)
  Receive Date: 20100601
  Receipt Date: 20100519
  Transmission Date: 20101027
  Serious: Yes (Disabling, Other)
  Sender: FDA-Public Use
  Company Number: PHHY2010JP32844

PATIENT
  Sex: Male
  Weight: 49 kg

DRUGS (11)
  1. ICL670A ICL+DISTAB [Suspect]
     Indication: MYELODYSPLASTIC SYNDROME
     Dosage: 1000 MG, DAILY
     Route: 048
     Dates: start: 20090224, end: 20090320
  2. PYDOXAL [Concomitant]
     Indication: MYELODYSPLASTIC SYNDROME
     Dosage: 30 MG, UNK
     Route: 048
     Dates: start: 20080919, end: 20090618
  3. GLAKAY [Concomitant]
     Dosage: 45 MG, UNK
     Route: 048
     Dates: start: 20080502, end: 20090618
  4. TAKEPRON [Concomitant]
     Dosage: 15 MG, UNK
     Route: 048
     Dates: start: 20080709, end: 20090618
  5. ALFAROL [Concomitant]
     Dosage: 1 UG, UNK
     Route: 048
     Dates: start: 20080828, end: 20090618
  6. SOLON [Concomitant]
     Dosage: 0.5 G, UNK
     Route: 048
     Dates: start: 20080828, end: 20090618
  7. PREDONINE [Concomitant]
     Dosage: 15 MG, UNK
     Route: 048
     Dates: start: 20050101, end: 20090618
  8. LENDORMIN [Concomitant]
     Dosage: 0.25 MG, UNK
     Route: 048
     Dates: start: 20050101, end: 20090618
  9. MINOCYCLINE HCL [Concomitant]
     Dosage: 100 MG, UNK
     Route: 048
     Dates: start: 20081219, end: 20090319
  10. PURSENNID [Concomitant]
     Dosage: 2 DF, UNK
     Route: 048
     Dates: start: 20050101, end: 20090618
  11. RED BLOOD CELLS [Concomitant]
     Dosage: 2 UNITS EVERY 1-2 WEEKS
     Dates: start: 20080224, end: 20090615

REACTIONS (4)
  - AIRWAY BURNS [None]
  - MUSCLE ATROPHY [None]
  - PNEUMONIA [None]
  - SEPSIS [None]
